FAERS Safety Report 18350850 (Version 1)
Quarter: 2020Q4

REPORT INFORMATION
  Report Type: Spontaneous
  Country: US (occurrence: US)
  Receive Date: 20201006
  Receipt Date: 20201006
  Transmission Date: 20210114
  Serious: No
  Sender: FDA-Public Use
  Company Number: US-NOVOPROD-754461

PATIENT
  Age: 52 Year
  Sex: Female

DRUGS (1)
  1. RYBELSUS [Suspect]
     Active Substance: SEMAGLUTIDE
     Indication: TYPE 2 DIABETES MELLITUS
     Dosage: 3  MG
     Route: 048
     Dates: start: 202008, end: 2020

REACTIONS (2)
  - Nausea [Unknown]
  - Disturbance in attention [Unknown]

NARRATIVE: CASE EVENT DATE: 202008
